FAERS Safety Report 8593409 (Version 3)
Quarter: 2014Q1

REPORT INFORMATION
  Report Type: Spontaneous
  Country: US (occurrence: US)
  Receive Date: 20120604
  Receipt Date: 20140107
  Transmission Date: 20141002
  Serious: Yes (Disabling)
  Sender: FDA-Public Use
  Company Number: US-ASTRAZENECA-2012SE35292

PATIENT
  Age: 45 Year
  Sex: Male
  Weight: 158.8 kg

DRUGS (24)
  1. NEXIUM [Suspect]
     Indication: ERUCTATION
     Route: 048
     Dates: start: 1998, end: 2010
  2. NEXIUM [Suspect]
     Indication: ERUCTATION
     Route: 048
     Dates: start: 20040202
  3. OMEPRAZOLE [Suspect]
     Indication: ERUCTATION
     Route: 048
     Dates: start: 20071012
  4. OMEPRAZOLE [Suspect]
     Indication: ERUCTATION
     Route: 048
     Dates: start: 2012, end: 2013
  5. TUMS [Concomitant]
     Indication: DYSPEPSIA
     Dosage: 5 A DAY
     Dates: start: 1996, end: 1999
  6. ALKA SELTZER [Concomitant]
     Indication: DYSPEPSIA
     Dosage: TWICE 4 TABLET
     Dates: start: 1999
  7. MILK OF MAGNESIA [Concomitant]
     Indication: ABDOMINAL DISCOMFORT
     Dosage: LITTLE CUP 3X DAILY
     Dates: start: 1995, end: 1996
  8. PEPTO BISMOL [Concomitant]
     Indication: GASTROOESOPHAGEAL REFLUX DISEASE
     Dosage: AS NEEDED
     Dates: start: 1995
  9. ROLAIDS [Concomitant]
     Indication: GASTROOESOPHAGEAL REFLUX DISEASE
     Dosage: 4 DAILY
     Dates: start: 1978, end: 1995
  10. MYLANTA [Concomitant]
     Indication: GASTROOESOPHAGEAL REFLUX DISEASE
     Dosage: 2X DAILY
     Dates: start: 1998, end: 1998
  11. MYLANTA [Concomitant]
     Indication: DYSPEPSIA
     Dosage: 2X DAILY
     Dates: start: 1998, end: 1998
  12. IBUPROFEN [Concomitant]
     Dates: start: 20070301
  13. TRAMADOL [Concomitant]
     Dates: start: 20071008
  14. LIPITOR [Concomitant]
  15. LISINOPRIL [Concomitant]
     Dates: start: 20090921
  16. LISINOPRIL/ HCTZ [Concomitant]
     Dosage: 20/12.5
     Dates: start: 20091214
  17. FAMOTIDINE [Concomitant]
     Dates: start: 20110601
  18. BUPROPION [Concomitant]
     Dates: start: 20110728
  19. PREDNISONE [Concomitant]
     Dates: start: 20120110
  20. NIASPAN [Concomitant]
     Dates: start: 20121220
  21. CELEBREX [Concomitant]
     Dates: start: 20130930
  22. CELEXA [Concomitant]
     Route: 048
     Dates: start: 20030222
  23. VIOXX [Concomitant]
     Route: 048
     Dates: start: 20030827
  24. LORATADINE [Concomitant]
     Dates: start: 20040813

REACTIONS (15)
  - Physical disability [Not Recovered/Not Resolved]
  - Learning disability [Not Recovered/Not Resolved]
  - Osteoporosis [Unknown]
  - Multiple fractures [Unknown]
  - Spinal osteoarthritis [Unknown]
  - Rib fracture [Recovered/Resolved]
  - Spinal disorder [Unknown]
  - Intervertebral disc disorder [Unknown]
  - Bone disorder [Unknown]
  - Fracture [Unknown]
  - Bone pain [Unknown]
  - Calcium deficiency [Unknown]
  - Arthritis [Unknown]
  - Diabetes mellitus [Unknown]
  - Depression [Unknown]
